FAERS Safety Report 12831672 (Version 2)
Quarter: 2016Q4

REPORT INFORMATION
  Report Type: Report from Study
  Country: US (occurrence: US)
  Receive Date: 20161010
  Receipt Date: 20161205
  Transmission Date: 20170207
  Serious: Yes (Other)
  Sender: FDA-Public Use
  Company Number: US-ROCHE-1837822

PATIENT
  Age: 54 Year
  Sex: Female
  Weight: 84.1 kg

DRUGS (11)
  1. VELIPARIB [Suspect]
     Active Substance: VELIPARIB
     Route: 048
     Dates: start: 20151216
  2. BEVACIZUMAB [Suspect]
     Active Substance: BEVACIZUMAB
     Route: 042
     Dates: start: 20151117
  3. VELIPARIB [Suspect]
     Active Substance: VELIPARIB
     Route: 048
     Dates: start: 20150908
  4. BEVACIZUMAB [Suspect]
     Active Substance: BEVACIZUMAB
     Route: 042
     Dates: start: 20150929
  5. BEVACIZUMAB [Suspect]
     Active Substance: BEVACIZUMAB
     Route: 042
     Dates: start: 20151020
  6. BEVACIZUMAB [Suspect]
     Active Substance: BEVACIZUMAB
     Route: 042
     Dates: start: 20151216
  7. VELIPARIB [Suspect]
     Active Substance: VELIPARIB
     Route: 048
     Dates: start: 20151020
  8. VELIPARIB [Suspect]
     Active Substance: VELIPARIB
     Route: 048
     Dates: start: 20151117
  9. BEVACIZUMAB [Suspect]
     Active Substance: BEVACIZUMAB
     Indication: FALLOPIAN TUBE CANCER
     Dosage: COURSE 2, CYCLE 2-6, OVER 30-90 MINS ON DAY 1
     Route: 042
     Dates: start: 20150908
  10. VELIPARIB [Suspect]
     Active Substance: VELIPARIB
     Route: 048
     Dates: start: 20150929
  11. VELIPARIB [Suspect]
     Active Substance: VELIPARIB
     Indication: FALLOPIAN TUBE CANCER
     Dosage: COURSE 1, ON DAYS 1-21
     Route: 048
     Dates: start: 20150818

REACTIONS (3)
  - Neutrophil count decreased [Unknown]
  - Anaemia [Unknown]
  - White blood cell count decreased [Unknown]
